FAERS Safety Report 5482715-X (Version None)
Quarter: 2007Q4

REPORT INFORMATION
  Report Type: 
  Country: None (occurrence: None)
  Receive Date: 20071011
  Receipt Date: 20070928
  Transmission Date: 20080405
  Serious: Yes (Other)
  Sender: FDA-Public Use
  Company Number: IE-PFIZER INC-2007083196

PATIENT
  Sex: Female

DRUGS (1)
  1. SOLU-MEDRONE [Suspect]
     Route: 050

REACTIONS (1)
  - FLUSHING [None]
